APPROVED DRUG PRODUCT: DICLOFENAC POTASSIUM
Active Ingredient: DICLOFENAC POTASSIUM
Strength: 50MG
Dosage Form/Route: FOR SOLUTION;ORAL
Application: A202964 | Product #001 | TE Code: AB
Applicant: PH HEALTH LTD
Approved: May 2, 2016 | RLD: No | RS: No | Type: RX